FAERS Safety Report 6857193-6 (Version None)
Quarter: 2010Q3

REPORT INFORMATION
  Report Type: 
  Country: None (occurrence: None)
  Receive Date: 20100719
  Receipt Date: 20100216
  Transmission Date: 20110219
  Serious: No
  Sender: FDA-Public Use
  Company Number: US-KINGPHARMUSA00001-K201000185

PATIENT
  Sex: Female
  Weight: 55.782 kg

DRUGS (7)
  1. LEVOXYL [Suspect]
     Indication: BLOOD THYROID STIMULATING HORMONE INCREASED
     Dosage: 50 MCG, QD
     Dates: start: 19900101
  2. LEVOXYL [Suspect]
     Indication: FATIGUE
     Dosage: (12.5 MCG, QD (1/2 25 MCG TABLET)
     Dates: start: 19900101
  3. LEVOXYL [Suspect]
     Indication: DRY SKIN
  4. LEVOXYL [Suspect]
     Indication: IRRITABILITY
  5. LEVOXYL [Suspect]
     Indication: MYALGIA
  6. ESTROGEN NOS [Concomitant]
     Indication: HOT FLUSH
     Dosage: UNK
  7. ESTROGEN NOS [Concomitant]
     Indication: INSOMNIA

REACTIONS (3)
  - ALOPECIA [None]
  - BLOOD THYROID STIMULATING HORMONE INCREASED [None]
  - SKIN WRINKLING [None]
